FAERS Safety Report 21872655 (Version 1)
Quarter: 2023Q1

REPORT INFORMATION
  Report Type: Report from Study
  Country: US (occurrence: US)
  Receive Date: 20230117
  Receipt Date: 20230117
  Transmission Date: 20230418
  Serious: Yes (Hospitalization)
  Sender: FDA-Public Use
  Company Number: US-GILEAD-2023-0612801

PATIENT
  Sex: Male

DRUGS (14)
  1. AZTREONAM LYSINE [Suspect]
     Active Substance: AZTREONAM LYSINE
     Indication: Product used for unknown indication
     Dosage: 1 ML, TID, FOR 2 WEEKS ON AND 2 WEEKS OFF
     Route: 055
     Dates: start: 20210716
  2. ZYRTEC [Concomitant]
     Active Substance: CETIRIZINE HYDROCHLORIDE
  3. IBUPROFEN [Concomitant]
     Active Substance: IBUPROFEN
  4. ONDANSETRON [Concomitant]
     Active Substance: ONDANSETRON
  5. CIPRODEX [Concomitant]
     Active Substance: CIPROFLOXACIN HYDROCHLORIDE\DEXAMETHASONE
  6. TOBRAMYCIN [Concomitant]
     Active Substance: TOBRAMYCIN
  7. PEPCID AC [Concomitant]
     Active Substance: FAMOTIDINE
  8. ALBUTEROL SULFATE [Concomitant]
     Active Substance: ALBUTEROL SULFATE
  9. TYLENOL [Concomitant]
     Active Substance: ACETAMINOPHEN
  10. ATROVENT [Concomitant]
     Active Substance: IPRATROPIUM BROMIDE
  11. LORATADINE\PSEUDOEPHEDRINE SULFATE [Concomitant]
     Active Substance: LORATADINE\PSEUDOEPHEDRINE SULFATE
  12. CYPROHEPTADINE [Concomitant]
     Active Substance: CYPROHEPTADINE
  13. KEPPRA XR [Concomitant]
     Active Substance: LEVETIRACETAM
  14. NOURISH [Concomitant]

REACTIONS (1)
  - Respiratory tract infection [Unknown]
